FAERS Safety Report 8785341 (Version 3)
Quarter: 2012Q4

REPORT INFORMATION
  Report Type: 
  Country: US (occurrence: US)
  Receive Date: 20120914
  Receipt Date: 20121004
  Transmission Date: 20130627
  Serious: Yes (Life-Threatening, Other)
  Sender: FDA-Public Use
  Company Number: US-US-EMD SERONO, INC.-7160190

PATIENT
  Age: 35 None
  Sex: Female
  Weight: 63 kg

DRUGS (1)
  1. REBIF [Suspect]
     Indication: MULTIPLE SCLEROSIS
     Route: 058
     Dates: start: 20100315, end: 20120906

REACTIONS (3)
  - Suicidal ideation [Unknown]
  - Self-injurious ideation [Unknown]
  - Homicidal ideation [Recovered/Resolved]
